FAERS Safety Report 7349906-4 (Version None)
Quarter: 2011Q1

REPORT INFORMATION
  Report Type: 
  Country: None (occurrence: None)
  Receive Date: 20110314
  Receipt Date: 20110304
  Transmission Date: 20110831
  Serious: Yes (Hospitalization, Other)
  Sender: FDA-Public Use
  Company Number: US-ROCHE-758028

PATIENT
  Sex: Male
  Weight: 86.2 kg

DRUGS (10)
  1. ACCUTANE [Suspect]
     Route: 048
     Dates: start: 19940121
  2. ACCUTANE [Suspect]
     Dosage: 40 MG QAM AND 20 MG QHS
     Route: 048
     Dates: start: 19960219, end: 19960901
  3. ACCUTANE [Suspect]
     Route: 048
     Dates: start: 19960115
  4. MAGNOLAX [Concomitant]
  5. ACCUTANE [Suspect]
     Route: 048
     Dates: start: 20020617, end: 20020927
  6. ACCUTANE [Suspect]
     Dosage: STRENGTH: 20MG AND 40 MG
     Route: 048
     Dates: start: 19901230
  7. ACCUTANE [Suspect]
     Route: 048
     Dates: start: 19931019, end: 19931112
  8. ACCUTANE [Suspect]
     Dosage: 40 MG QD FOR ONE WEEK LATER 40 MG QAM AND 20 MG QHS
     Route: 048
     Dates: start: 19931201
  9. BENZAMYCIN [Concomitant]
  10. EMGEL [Concomitant]

REACTIONS (8)
  - COLITIS ULCERATIVE [None]
  - IRON DEFICIENCY ANAEMIA [None]
  - MALNUTRITION [None]
  - ORAL HERPES [None]
  - INTESTINAL OBSTRUCTION [None]
  - INFLAMMATORY BOWEL DISEASE [None]
  - ARTHRALGIA [None]
  - ACNE [None]
